FAERS Safety Report 4550397-7 (Version None)
Quarter: 2004Q4

REPORT INFORMATION
  Report Type: 
  Country: None (occurrence: None)
  Receive Date: 20041227
  Receipt Date: 20040922
  Transmission Date: 20050328
  Serious: No
  Sender: FDA-Public Use
  Company Number: 04P-163-0258706-00

PATIENT
  Age: 67 Year
  Sex: Male
  Weight: 90.7194 kg

DRUGS (6)
  1. HUMIRA [Suspect]
     Indication: RHEUMATOID ARTHRITIS
     Dosage: 40 MG, 1 IN 2 WK, SUBCUTANEOUS
     Route: 058
     Dates: start: 20030901
  2. CLOPIDOGREL BISULFATE [Concomitant]
  3. LISINOPRIL AND HYDROCHLOROTHIAZIDE [Concomitant]
  4. ATENOLOL [Concomitant]
  5. METHOTREXATE [Concomitant]
  6. PRENAVITE [Concomitant]

REACTIONS (1)
  - RHEUMATOID ARTHRITIS [None]
